FAERS Safety Report 9262355 (Version 2)
Quarter: 2013Q2

REPORT INFORMATION
  Report Type: Spontaneous
  Country: US (occurrence: None)
  Receive Date: 20130422
  Receipt Date: 20130422
  Transmission Date: 20140414
  Serious: Yes (Other)
  Sender: FDA-Public Use
  Company Number: AUR-APL-2013-02648

PATIENT
  Age: 68 Year
  Sex: Female
  Weight: 74.84 kg

DRUGS (4)
  1. GABAPENTIN [Suspect]
     Indication: NEUROPATHY PERIPHERAL
     Dosage: 1800 MG ( 600 MG, 3 IN 1 D), ORAL?
     Route: 048
     Dates: start: 2012, end: 20130317
  2. COUMADIN (WARFARIN SODIUM) [Suspect]
     Indication: PRODUCT USED FOR UNKNOWN INDICATION
  3. GLIMEPIRIDE (GLIMEPIRIDE) [Concomitant]
  4. METFORMIN (METFORMIN) [Concomitant]

REACTIONS (3)
  - Muscular weakness [None]
  - Gait disturbance [None]
  - Drug level increased [None]
